FAERS Safety Report 5069420-9 (Version None)
Quarter: 2006Q3

REPORT INFORMATION
  Report Type: 
  Country: None (occurrence: None)
  Receive Date: 20060714
  Receipt Date: 20060328
  Transmission Date: 20061208
  Serious: No
  Sender: FDA-Public Use
  Company Number: 2006SP001415

PATIENT
  Age: 80 Year
  Sex: Female
  Weight: 83.9154 kg

DRUGS (12)
  1. LUNESTA [Suspect]
     Indication: INSOMNIA
     Dosage: SEE IMAGE
     Route: 048
     Dates: start: 20060301, end: 20060301
  2. LUNESTA [Suspect]
     Indication: INSOMNIA
     Dosage: SEE IMAGE
     Route: 048
     Dates: start: 20060314, end: 20060301
  3. ENDOXAN [Concomitant]
  4. AVANDIA [Concomitant]
  5. GLYBURIDE [Concomitant]
  6. ATENOLOL [Concomitant]
  7. ASPIRIN [Concomitant]
  8. FUROSEMIDE [Concomitant]
  9. ATORVASTATIN CALCIUM [Concomitant]
  10. DYNACIRC [Concomitant]
  11. NAPROXEN [Concomitant]
  12. ALLOPURINOL [Concomitant]

REACTIONS (2)
  - MIDDLE INSOMNIA [None]
  - NERVOUSNESS [None]
